FAERS Safety Report 19437620 (Version 1)
Quarter: 2021Q2

REPORT INFORMATION
  Report Type: Spontaneous
  Country: US (occurrence: US)
  Receive Date: 20210619
  Receipt Date: 20210619
  Transmission Date: 20210717
  Serious: Yes (Hospitalization, Other)
  Sender: FDA-Public Use
  Company Number: US-AUROBINDO-AUR-APL-2021-024485

PATIENT
  Age: 15 Year
  Sex: Male

DRUGS (5)
  1. DESIPRAMINE [Interacting]
     Active Substance: DESIPRAMINE
     Dosage: 300 MILLIGRAM (AT BEDTIME)
     Route: 065
  2. DESIPRAMINE [Interacting]
     Active Substance: DESIPRAMINE
     Indication: ATTENTION DEFICIT HYPERACTIVITY DISORDER
     Dosage: 50 MILLIGRAM (EVERY MORNING)
     Route: 065
  3. DESIPRAMINE [Interacting]
     Active Substance: DESIPRAMINE
     Dosage: 375 MILLIGRAM (AT BEDTIME)
     Route: 065
  4. DESIPRAMINE [Interacting]
     Active Substance: DESIPRAMINE
     Indication: MAJOR DEPRESSION
     Dosage: 100 MILLIGRAM (AT BEDTIME)
     Route: 065
  5. IBUPROFEN. [Suspect]
     Active Substance: IBUPROFEN
     Indication: PRODUCT USED FOR UNKNOWN INDICATION
     Dosage: 600 MILLIGRAM, 3 TIMES A DAY
     Route: 065

REACTIONS (9)
  - Generalised tonic-clonic seizure [Recovered/Resolved]
  - Cardiac disorder [Recovered/Resolved]
  - Vision blurred [Recovered/Resolved]
  - Ventricular tachycardia [Recovered/Resolved]
  - Drug level increased [Unknown]
  - Drug interaction [Unknown]
  - Nervous system disorder [Recovered/Resolved]
  - Depressed level of consciousness [Recovered/Resolved]
  - Bundle branch block right [Recovered/Resolved]
